FAERS Safety Report 25674636 (Version 2)
Quarter: 2025Q3

REPORT INFORMATION
  Report Type: Spontaneous
  Country: IR (occurrence: IR)
  Receive Date: 20250813
  Receipt Date: 20250905
  Transmission Date: 20251021
  Serious: Yes (Other)
  Sender: RANBAXY
  Company Number: IR-SUN PHARMACEUTICAL INDUSTRIES LTD-2025RR-521479

PATIENT
  Age: 53 Year
  Sex: Male

DRUGS (4)
  1. ALPRAZOLAM [Suspect]
     Active Substance: ALPRAZOLAM
     Indication: Product used for unknown indication
     Route: 048
     Dates: end: 2023
  2. ALPRAZOLAM [Suspect]
     Active Substance: ALPRAZOLAM
     Indication: Drug use disorder
  3. HALOPERIDOL [Suspect]
     Active Substance: HALOPERIDOL
     Indication: Product used for unknown indication
     Route: 030
     Dates: start: 2023
  4. HALOPERIDOL [Suspect]
     Active Substance: HALOPERIDOL
     Indication: Delirium

REACTIONS (8)
  - Neuroleptic malignant syndrome [Recovered/Resolved]
  - Withdrawal syndrome [Unknown]
  - Delirium [Unknown]
  - Psychotic disorder [Unknown]
  - Mutism [Recovered/Resolved]
  - Muscle rigidity [Recovered/Resolved]
  - Stupor [Recovered/Resolved]
  - Posturing [Recovered/Resolved]
